FAERS Safety Report 9755224 (Version 1)
Quarter: 2013Q4

REPORT INFORMATION
  Report Type: Spontaneous
  Country: US (occurrence: US)
  Receive Date: 20131213
  Receipt Date: 20131213
  Transmission Date: 20140711
  Serious: No
  Sender: FDA-Public Use
  Company Number: US-GLAXOSMITHKLINE-A1014265A

PATIENT
  Sex: Female

DRUGS (1)
  1. NICODERM CQ 14MG [Suspect]
     Indication: EX-TOBACCO USER
     Dates: end: 20130228

REACTIONS (1)
  - Nausea [Not Recovered/Not Resolved]
